FAERS Safety Report 18931440 (Version 1)
Quarter: 2021Q1

REPORT INFORMATION
  Report Type: Other
  Country: US (occurrence: US)
  Receive Date: 20210224
  Receipt Date: 20210224
  Transmission Date: 20210420
  Serious: Yes (Other)
  Sender: FDA-Public Use
  Company Number: US-ROCHE-2758895

PATIENT
  Age: 57 Year
  Sex: Male
  Weight: 64 kg

DRUGS (8)
  1. RITUXAN [Suspect]
     Active Substance: RITUXIMAB
     Indication: CEREBRAL DISORDER
  2. DIPHENHYDRAMINE. [Concomitant]
     Active Substance: DIPHENHYDRAMINE
     Route: 042
  3. BACTRIM [Concomitant]
     Active Substance: SULFAMETHOXAZOLE\TRIMETHOPRIM
     Dates: start: 202012
  4. RITUXAN [Suspect]
     Active Substance: RITUXIMAB
     Indication: IMMUNOLOGY TEST ABNORMAL
     Dosage: DAY 1 AND DAY 15.
     Route: 042
     Dates: start: 20210122
  5. RITUXAN [Suspect]
     Active Substance: RITUXIMAB
     Indication: IDIOPATHIC ORBITAL INFLAMMATION
  6. ACETAMINOPHEN. [Concomitant]
     Active Substance: ACETAMINOPHEN
     Route: 048
  7. PREDNISONE. [Concomitant]
     Active Substance: PREDNISONE
     Route: 048
     Dates: start: 202012
  8. DIPHENHYDRAMINE. [Concomitant]
     Active Substance: DIPHENHYDRAMINE
     Route: 042

REACTIONS (7)
  - Dyspnoea [Recovered/Resolved]
  - Intentional product use issue [Unknown]
  - Wheezing [Recovered/Resolved]
  - Immune system disorder [Unknown]
  - Off label use [Unknown]
  - Flushing [Recovered/Resolved]
  - Chest discomfort [Recovered/Resolved]

NARRATIVE: CASE EVENT DATE: 20210122
